FAERS Safety Report 25842393 (Version 2)
Quarter: 2025Q3

REPORT INFORMATION
  Report Type: Report from Study
  Country: CA (occurrence: CA)
  Receive Date: 20250924
  Receipt Date: 20250927
  Transmission Date: 20251020
  Serious: Yes (Other)
  Sender: ABBVIE
  Company Number: CA-ABBVIE-6471846

PATIENT
  Sex: Male

DRUGS (2)
  1. RINVOQ [Suspect]
     Active Substance: UPADACITINIB
     Indication: Crohn^s disease
     Dosage: STRENGTH: 30MG
     Route: 048
     Dates: end: 202509
  2. RINVOQ [Suspect]
     Active Substance: UPADACITINIB
     Indication: Crohn^s disease
     Route: 048

REACTIONS (8)
  - Suicidal ideation [Recovering/Resolving]
  - Aggression [Recovered/Resolved]
  - Irritability [Recovering/Resolving]
  - Rash [Recovering/Resolving]
  - Blister [Recovering/Resolving]
  - Dyspnoea [Unknown]
  - Haemorrhoids [Unknown]
  - Mood swings [Recovered/Resolved]
